FAERS Safety Report 6053903-9 (Version None)
Quarter: 2009Q1

REPORT INFORMATION
  Report Type: 
  Country: None (occurrence: None)
  Receive Date: 20090123
  Receipt Date: 20090108
  Transmission Date: 20090719
  Serious: Yes (Disabling)
  Sender: FDA-Public Use
  Company Number: 2009S1000385

PATIENT
  Age: 68 Year

DRUGS (2)
  1. BISOPROLOL FUMARATE [Suspect]
     Indication: HYPERTENSION
     Dosage: 5 MG; 2.5 MG; ORAL
     Route: 048
     Dates: start: 20081017, end: 20081109
  2. BISOPROLOL FUMARATE [Suspect]
     Indication: HYPERTENSION
     Dosage: 5 MG; 2.5 MG; ORAL
     Route: 048
     Dates: start: 20080828

REACTIONS (4)
  - FEELING COLD [None]
  - FEELING HOT [None]
  - MALAISE [None]
  - PRURITUS [None]
